APPROVED DRUG PRODUCT: SULFAMETHOXAZOLE AND TRIMETHOPRIM DOUBLE STRENGTH
Active Ingredient: SULFAMETHOXAZOLE; TRIMETHOPRIM
Strength: 800MG;160MG
Dosage Form/Route: TABLET;ORAL
Application: A070037 | Product #001
Applicant: HERITAGE PHARMA LABS INC DBA AVET PHARMACEUTICALS LABS INC
Approved: Jun 2, 1987 | RLD: No | RS: No | Type: DISCN